FAERS Safety Report 11738266 (Version 2)
Quarter: 2015Q4

REPORT INFORMATION
  Report Type: Spontaneous
  Country: FR (occurrence: FR)
  Receive Date: 20151113
  Receipt Date: 20151125
  Transmission Date: 20160304
  Serious: Yes (Death, Other)
  Sender: FDA-Public Use
  Company Number: FR-BRISTOL-MYERS SQUIBB COMPANY-BMS-2015-075574

PATIENT
  Age: 92 Year
  Sex: Male

DRUGS (3)
  1. DEPAKINE                           /00228501/ [Suspect]
     Active Substance: VALPROIC ACID
     Indication: EPILEPSY
     Dosage: 500 MG, BID
     Route: 048
     Dates: start: 20150806, end: 20150922
  2. COUMADINE [Suspect]
     Active Substance: WARFARIN SODIUM
     Indication: DEEP VEIN THROMBOSIS
     Dosage: 2 MG, QD
     Route: 048
     Dates: start: 201504, end: 20150922
  3. SERESTA [Suspect]
     Active Substance: OXAZEPAM
     Indication: ANXIETY
     Dosage: 10 MG, QD
     Route: 048
     Dates: start: 201503, end: 20150922

REACTIONS (7)
  - Thrombocytopenia [Fatal]
  - Gingival bleeding [Not Recovered/Not Resolved]
  - Petechiae [Not Recovered/Not Resolved]
  - Purpura [Not Recovered/Not Resolved]
  - Pulmonary haemorrhage [Unknown]
  - Haematoma [Not Recovered/Not Resolved]
  - Neutropenia [Unknown]

NARRATIVE: CASE EVENT DATE: 20150922
